FAERS Safety Report 8521627 (Version 2)
Quarter: 2012Q4

REPORT INFORMATION
  Report Type: 
  Country: US (occurrence: US)
  Receive Date: 20120419
  Receipt Date: 20121019
  Transmission Date: 20130627
  Serious: No
  Sender: FDA-Public Use
  Company Number: US-BRISTOL-MYERS SQUIBB COMPANY-16413460

PATIENT
  Sex: Male

DRUGS (2)
  1. YERVOY [Suspect]
  2. BLOOD PRESSURE MEDICATION [Suspect]

REACTIONS (1)
  - Cough [Unknown]
